FAERS Safety Report 15066364 (Version 1)
Quarter: 2018Q2

REPORT INFORMATION
  Report Type: Report from Study
  Country: IT (occurrence: IT)
  Receive Date: 20180626
  Receipt Date: 20180626
  Transmission Date: 20180711
  Serious: No
  Sender: FDA-Public Use
  Company Number: IT-ADIENNEP-2018AD000143

PATIENT

DRUGS (2)
  1. THIOTEPA. [Suspect]
     Active Substance: THIOTEPA
     Indication: BONE MARROW CONDITIONING REGIMEN
     Dates: start: 20161106, end: 20161106
  2. TREOSULFAN [Concomitant]
     Active Substance: TREOSULFAN
     Indication: BONE MARROW CONDITIONING REGIMEN

REACTIONS (4)
  - Vomiting [Recovered/Resolved]
  - Diarrhoea [Recovered/Resolved]
  - Vomiting [Recovered/Resolved]
  - Gingival bleeding [Recovered/Resolved]

NARRATIVE: CASE EVENT DATE: 20161107
